FAERS Safety Report 7024902-5 (Version None)
Quarter: 2010Q4

REPORT INFORMATION
  Report Type: 
  Country: None (occurrence: None)
  Receive Date: 20101001
  Receipt Date: 20100623
  Transmission Date: 20110411
  Serious: No
  Sender: FDA-Public Use
  Company Number: US-NOVEN-10US001337

PATIENT
  Sex: Male
  Weight: 82.54 kg

DRUGS (8)
  1. FENTANYL [Suspect]
     Indication: PAIN
     Dosage: 100 UG/HR Q72 HRS
     Route: 062
     Dates: start: 20100620
  2. PERCOCET [Concomitant]
     Indication: BREAKTHROUGH PAIN
     Dosage: UP TO 6/DAY
     Route: 048
     Dates: start: 20100519
  3. FLEXERIL [Concomitant]
     Indication: MUSCLE SPASMS
     Dosage: 10 MG, TID
     Route: 048
     Dates: start: 20090101
  4. REGELAN [Concomitant]
     Indication: ABDOMINAL DISCOMFORT
     Dosage: 10 MG, BID
     Route: 048
     Dates: start: 20080101
  5. ELAVIL [Concomitant]
     Indication: INSOMNIA
     Dosage: 50 MG, BEDTIME
     Route: 048
     Dates: start: 20000101
  6. NEURONTIN [Concomitant]
     Indication: NERVE INJURY
     Dosage: 400 MG, TID
     Route: 048
     Dates: start: 20000101
  7. PREVACID [Concomitant]
     Indication: GASTROOESOPHAGEAL REFLUX DISEASE
     Dosage: 15 MG, BEDTIME
     Route: 048
     Dates: start: 20070101
  8. DURAGESIC-100 [Concomitant]
     Dosage: UNK
     Route: 062
     Dates: start: 20050101, end: 20100601

REACTIONS (4)
  - FORMICATION [None]
  - INADEQUATE ANALGESIA [None]
  - PRODUCT QUALITY ISSUE [None]
  - WITHDRAWAL SYNDROME [None]
